FAERS Safety Report 13722339 (Version 2)
Quarter: 2017Q3

REPORT INFORMATION
  Report Type: Spontaneous
  Country: JP (occurrence: JP)
  Receive Date: 20170706
  Receipt Date: 20170725
  Transmission Date: 20171127
  Serious: Yes (Life-Threatening, Hospitalization, Other)
  Sender: FDA-Public Use
  Company Number: JP-ACTELION-A-CH2017-155377

PATIENT
  Age: 67 Year
  Sex: Male
  Weight: 59 kg

DRUGS (10)
  1. OPSUMIT [Suspect]
     Active Substance: MACITENTAN
     Indication: PULMONARY ARTERIAL HYPERTENSION
     Dosage: 10 MG, QD
     Route: 048
     Dates: start: 20170414
  2. ADCIRCA [Concomitant]
     Active Substance: TADALAFIL
  3. NEXIUM [Concomitant]
     Active Substance: ESOMEPRAZOLE MAGNESIUM
  4. ELIQUIS [Concomitant]
     Active Substance: APIXABAN
  5. SPIRONOLACTONE. [Concomitant]
     Active Substance: SPIRONOLACTONE
  6. BERASUS [Concomitant]
     Active Substance: BERAPROST SODIUM
  7. SAMSCA [Concomitant]
     Active Substance: TOLVAPTAN
  8. METFORMIN HYDROCHLORIDE. [Concomitant]
     Active Substance: METFORMIN HYDROCHLORIDE
  9. THEOPHYLLINE [Concomitant]
     Active Substance: THEOPHYLLINE ANHYDROUS
  10. FUROSEMIDE. [Concomitant]
     Active Substance: FUROSEMIDE

REACTIONS (6)
  - Haemoglobin decreased [Recovering/Resolving]
  - Packed red blood cell transfusion [Unknown]
  - Condition aggravated [Unknown]
  - Iron deficiency anaemia [Recovering/Resolving]
  - Right ventricular failure [Recovering/Resolving]
  - Respiratory disorder [Recovering/Resolving]

NARRATIVE: CASE EVENT DATE: 20170608
